FAERS Safety Report 24170627 (Version 1)
Quarter: 2024Q3

REPORT INFORMATION
  Report Type: Spontaneous
  Country: US (occurrence: None)
  Receive Date: 20240805
  Receipt Date: 20240805
  Transmission Date: 20241017
  Serious: Yes (Other)
  Sender: Public
  Company Number: None

PATIENT
  Age: 14 Year
  Sex: Male
  Weight: 60.8 kg

DRUGS (1)
  1. VILOXAZINE [Suspect]
     Active Substance: VILOXAZINE
     Indication: Attention deficit hyperactivity disorder
     Dosage: OTHER FREQUENCY : QAM;?
     Route: 048
     Dates: start: 20231013

REACTIONS (5)
  - Therapy interrupted [None]
  - Migraine [None]
  - Headache [None]
  - Pain [None]
  - Crying [None]

NARRATIVE: CASE EVENT DATE: 20240621
